FAERS Safety Report 10173336 (Version 1)
Quarter: 2014Q2

REPORT INFORMATION
  Report Type: Spontaneous
  Country: CN (occurrence: CN)
  Receive Date: 20140515
  Receipt Date: 20140515
  Transmission Date: 20141212
  Serious: Yes (Other)
  Sender: FDA-Public Use
  Company Number: CN-BAXTER-2014BAX023358

PATIENT
  Age: 41 Year
  Sex: Male
  Weight: 70 kg

DRUGS (2)
  1. 0.9% SODIUM CHLORIDE INJECTION [Suspect]
     Indication: MEDICATION DILUTION
     Route: 041
     Dates: start: 20130915, end: 20130915
  2. PHLOROGLUCINOL [Suspect]
     Indication: MUSCLE SPASMS
     Route: 041
     Dates: start: 20130915, end: 20130915

REACTIONS (2)
  - Rash pruritic [Recovered/Resolved]
  - Rash generalised [Recovered/Resolved]
